FAERS Safety Report 5264300-8 (Version None)
Quarter: 2007Q1

REPORT INFORMATION
  Report Type: 
  Country: None (occurrence: None)
  Receive Date: 20070309
  Receipt Date: 20070223
  Transmission Date: 20070707
  Serious: Yes (Death, Life-Threatening, Hospitalization, Other)
  Sender: FDA-Public Use
  Company Number: 2007SP003087

PATIENT
  Age: 77 Year
  Sex: Male
  Weight: 98 kg

DRUGS (8)
  1. EPTIFIBATIDE (S-P) (EPTIFIBATIDE) [Suspect]
     Indication: ACUTE CORONARY SYNDROME
     Dosage: 11.25 MG; QH; IV
     Route: 042
     Dates: start: 20070202, end: 20070205
  2. ASPIRIN [Concomitant]
  3. FLUVASTATIN [Concomitant]
  4. BISOPROLOL [Concomitant]
  5. OXAZEPAM [Concomitant]
  6. DALTEPARIN SODIUM [Concomitant]
  7. CLOPIDOGREL [Concomitant]
  8. PANTOPRAZOLE SODIUM [Concomitant]

REACTIONS (2)
  - CARDIOVASCULAR DISORDER [None]
  - CEREBRAL HAEMORRHAGE [None]
